FAERS Safety Report 17511077 (Version 1)
Quarter: 2020Q1

REPORT INFORMATION
  Report Type: Report from Study
  Country: CL (occurrence: CL)
  Receive Date: 20200306
  Receipt Date: 20200306
  Transmission Date: 20200409
  Serious: Yes (Death, Other)
  Sender: FDA-Public Use
  Company Number: PHHY2018CL087570

PATIENT
  Sex: Male

DRUGS (1)
  1. GLIVEC [Suspect]
     Active Substance: IMATINIB MESYLATE
     Indication: GASTROINTESTINAL STROMAL TUMOUR
     Dosage: 400 MG, UNK, (1 X 400 MG TABLET)
     Route: 065

REACTIONS (6)
  - Death [Fatal]
  - Metastasis [Unknown]
  - Anaemia [Unknown]
  - Malaise [Unknown]
  - Influenza [Unknown]
  - Asthenia [Unknown]
